FAERS Safety Report 21198587 (Version 1)
Quarter: 2022Q3

REPORT INFORMATION
  Report Type: Spontaneous
  Country: TW (occurrence: TW)
  Receive Date: 20220811
  Receipt Date: 20220811
  Transmission Date: 20221027
  Serious: Yes (Death, Other)
  Sender: FDA-Public Use
  Company Number: TW-AMGEN-TWNSP2022134245

PATIENT

DRUGS (3)
  1. XGEVA [Suspect]
     Active Substance: DENOSUMAB
     Indication: Metastases to bone
     Dosage: UNK
     Route: 065
  2. XGEVA [Suspect]
     Active Substance: DENOSUMAB
     Indication: Bone disorder
  3. AFATINIB [Concomitant]
     Active Substance: AFATINIB
     Route: 065

REACTIONS (5)
  - Death [Fatal]
  - Osteonecrosis of jaw [Unknown]
  - Tooth disorder [Unknown]
  - Bone disorder [Unknown]
  - Hypocalcaemia [Unknown]
